FAERS Safety Report 9014485 (Version 3)
Quarter: 2013Q1

REPORT INFORMATION
  Report Type: Report from Study
  Country: JP (occurrence: JP)
  Receive Date: 20130115
  Receipt Date: 20130206
  Transmission Date: 20140127
  Serious: Yes (Death)
  Sender: FDA-Public Use
  Company Number: JP-GLAXOSMITHKLINE-B0858154A

PATIENT
  Age: 64 Year
  Sex: Female

DRUGS (14)
  1. PAXIL [Suspect]
     Indication: DEPRESSION
     Route: 048
     Dates: start: 20121119, end: 20121221
  2. SILECE [Concomitant]
     Indication: DEPRESSION
     Route: 048
  3. TETRAMIDE [Concomitant]
     Indication: DEPRESSION
     Route: 048
  4. SENIRAN [Concomitant]
     Indication: DEPRESSION
     Route: 048
  5. LENDORMIN [Concomitant]
     Indication: DEPRESSION
     Route: 048
  6. DEPAS [Concomitant]
     Indication: DEPRESSION
     Route: 048
  7. RIVOTRIL [Concomitant]
     Indication: DEPRESSION
     Route: 048
     Dates: end: 20121202
  8. RIVOTRIL [Concomitant]
     Indication: DEPRESSION
     Route: 048
     Dates: start: 20121203
  9. REMERON [Concomitant]
     Indication: DEPRESSION
     Route: 048
     Dates: start: 20121203, end: 20121216
  10. REMERON [Concomitant]
     Indication: DEPRESSION
     Route: 048
     Dates: start: 20121217
  11. PARIET [Concomitant]
     Route: 048
  12. PURSENNID [Concomitant]
     Route: 048
  13. SELBEX [Concomitant]
     Route: 048
  14. MARZULENE [Concomitant]
     Route: 048

REACTIONS (1)
  - Completed suicide [Fatal]
